FAERS Safety Report 8432295-1 (Version None)
Quarter: 2012Q2

REPORT INFORMATION
  Report Type: 
  Country: None (occurrence: None)
  Receive Date: 20120613
  Receipt Date: 20120608
  Transmission Date: 20120825
  Serious: Yes (Hospitalization, Other)
  Sender: FDA-Public Use
  Company Number: PHHY2012BR049988

PATIENT
  Sex: Male

DRUGS (5)
  1. ZETIL [Suspect]
     Dosage: UNK UKN, UNK
  2. DIOVAN HCT [Suspect]
     Dosage: (160/25 MG), UNK
  3. STILNOX [Suspect]
     Dosage: UNK UKN, UNK
  4. LEXOTAN [Suspect]
     Dosage: UNK UKN, UNK
  5. CYMBALTA [Suspect]
     Dosage: UNK UKN, UNK

REACTIONS (2)
  - CEREBRAL HAEMATOMA [None]
  - FALL [None]
